FAERS Safety Report 6876365-8 (Version None)
Quarter: 2010Q3

REPORT INFORMATION
  Report Type: 
  Country: None (occurrence: None)
  Receive Date: 20100727
  Receipt Date: 20100722
  Transmission Date: 20110219
  Serious: Yes (Death, Other)
  Sender: FDA-Public Use
  Company Number: CH-BAYER-201033382GPV

PATIENT
  Age: 86 Year
  Sex: Female
  Weight: 63 kg

DRUGS (8)
  1. CIPROFLOXACIN [Suspect]
     Indication: URINARY TRACT INFECTION
     Dosage: TOTAL DAILY DOSE: 1000 MG
     Route: 048
     Dates: start: 20100322, end: 20100324
  2. CORDARONE [Suspect]
     Indication: ATRIAL FIBRILLATION
     Dosage: FOR MONTHS
     Route: 048
     Dates: end: 20100325
  3. MOTILIUM [Suspect]
     Indication: NAUSEA
     Route: 060
     Dates: start: 20100324
  4. DIGOXIN [Suspect]
     Indication: ATRIAL FIBRILLATION
     Route: 048
     Dates: start: 20100316, end: 20100322
  5. PHENPROCOUMON [Concomitant]
     Route: 048
     Dates: start: 20100318, end: 20100324
  6. METOCLOPRAMIDE [Concomitant]
     Indication: NAUSEA
     Dates: start: 20100324
  7. ESOMEPRAZOLE MAGNESIUM [Concomitant]
     Route: 048
     Dates: start: 20100318
  8. CEFTRIAXONE [Concomitant]
     Indication: URINARY TRACT INFECTION
     Route: 042
     Dates: start: 20100318, end: 20100321

REACTIONS (1)
  - ELECTROCARDIOGRAM QT PROLONGED [None]
